FAERS Safety Report 25629706 (Version 1)
Quarter: 2025Q3

REPORT INFORMATION
  Report Type: Spontaneous
  Country: US (occurrence: US)
  Receive Date: 20250731
  Receipt Date: 20250731
  Transmission Date: 20251020
  Serious: No
  Sender: DR REDDYS
  Company Number: None

PATIENT
  Age: 36 Year
  Sex: Female

DRUGS (3)
  1. VALPROATE [Suspect]
     Active Substance: VALPROIC ACID
     Indication: Meningioma
     Dates: start: 202112, end: 202207
  2. ABEMACICLIB [Concomitant]
     Active Substance: ABEMACICLIB
     Indication: Meningioma
     Dosage: SINGLE-AGENT
     Dates: start: 202107
  3. CHLOROQUINE [Concomitant]
     Active Substance: CHLOROQUINE
     Indication: Meningioma
     Dates: start: 2021

REACTIONS (2)
  - Alopecia [Unknown]
  - Product use in unapproved indication [Unknown]

NARRATIVE: CASE EVENT DATE: 20220101
